FAERS Safety Report 24143504 (Version 1)
Quarter: 2024Q3

REPORT INFORMATION
  Report Type: Spontaneous
  Country: FR (occurrence: FR)
  Receive Date: 20240727
  Receipt Date: 20240727
  Transmission Date: 20241017
  Serious: Yes (Hospitalization)
  Sender: ABBVIE
  Company Number: None

PATIENT
  Age: 77 Year
  Sex: Male
  Weight: 86 kg

DRUGS (2)
  1. LEUPROLIDE ACETATE [Suspect]
     Active Substance: ISOPROPYL ALCOHOL\LEUPROLIDE ACETATE
     Indication: Prostatic adenoma
     Dosage: 160 MILLIGRAM, ROUTE: ORAL
     Route: 065
     Dates: start: 20240101
  2. XTANDI [Suspect]
     Active Substance: ENZALUTAMIDE
     Indication: Prostatic adenoma
     Dosage: 160 MILLIGRAM
     Route: 048
     Dates: start: 20240101

REACTIONS (1)
  - Cognitive disorder [Not Recovered/Not Resolved]

NARRATIVE: CASE EVENT DATE: 20240122
